FAERS Safety Report 24765072 (Version 2)
Quarter: 2025Q2

REPORT INFORMATION
  Report Type: Spontaneous
  Country: JP (occurrence: JP)
  Receive Date: 20241223
  Receipt Date: 20250509
  Transmission Date: 20250717
  Serious: Yes (Death, Other)
  Sender: BRISTOL-MYERS SQUIBB COMPANY
  Company Number: JP-BRISTOL-MYERS SQUIBB COMPANY-2024-196800

PATIENT
  Age: 7 Decade
  Sex: Male

DRUGS (1)
  1. SOTYKTU [Suspect]
     Active Substance: DEUCRAVACITINIB
     Indication: Pustular psoriasis
     Dosage: DOSE : 6 MG;     FREQ : ONCE DAILY
     Route: 048
     Dates: start: 202312, end: 202411

REACTIONS (1)
  - Pancreatic carcinoma [Fatal]
